FAERS Safety Report 5349050-1 (Version None)
Quarter: 2007Q2

REPORT INFORMATION
  Report Type: 
  Country: None (occurrence: None)
  Receive Date: 20070516
  Receipt Date: 20070126
  Transmission Date: 20071010
  Serious: No
  Sender: FDA-Public Use
  Company Number: 200710582US

PATIENT

DRUGS (1)
  1. APIDRA [Suspect]
     Dosage: INJ
     Route: 042

REACTIONS (1)
  - ALOPECIA [None]
